FAERS Safety Report 9834689 (Version 3)
Quarter: 2014Q1

REPORT INFORMATION
  Report Type: Report from Study
  Country: NL (occurrence: NL)
  Receive Date: 20140122
  Receipt Date: 20140307
  Transmission Date: 20141002
  Serious: Yes (Hospitalization, Other)
  Sender: FDA-Public Use
  Company Number: NL-BRISTOL-MYERS SQUIBB COMPANY-19836220

PATIENT
  Age: 60 Year
  Sex: Male

DRUGS (3)
  1. BELATACEPT [Suspect]
     Indication: RENAL TRANSPLANT
     Dosage: DOSED 06NOV13
     Route: 042
     Dates: start: 20131022
  2. MYCOPHENOLATE MOFETIL [Concomitant]
     Dates: start: 20131022
  3. PREDNISONE [Concomitant]
     Dates: start: 20131022

REACTIONS (3)
  - Urinary tract infection [Recovered/Resolved]
  - Pyrexia [Recovered/Resolved]
  - Perinephric collection [Recovering/Resolving]
